FAERS Safety Report 13091940 (Version 1)
Quarter: 2017Q1

REPORT INFORMATION
  Report Type: Spontaneous
  Country: US (occurrence: US)
  Receive Date: 20170104
  Receipt Date: 20170104
  Transmission Date: 20170428
  Serious: Yes (Other)
  Sender: FDA-Public Use
  Company Number: None

PATIENT
  Age: 56 Year
  Sex: Male

DRUGS (1)
  1. HARVONI [Suspect]
     Active Substance: LEDIPASVIR\SOFOSBUVIR
     Indication: HEPATITIS VIRAL
     Dosage: 90/400 MG DAILY BY MOUTH
     Route: 048
     Dates: start: 20161213

REACTIONS (1)
  - Blood urine present [None]

NARRATIVE: CASE EVENT DATE: 20170101
